FAERS Safety Report 26085165 (Version 1)
Quarter: 2025Q4

REPORT INFORMATION
  Report Type: Report from Study
  Country: UY (occurrence: UY)
  Receive Date: 20251125
  Receipt Date: 20251125
  Transmission Date: 20260118
  Serious: Yes (Other)
  Sender: ROCHE
  Company Number: UY-ROCHE-10000419475

PATIENT
  Age: 24 Year
  Sex: Female

DRUGS (1)
  1. OCRELIZUMAB [Suspect]
     Active Substance: OCRELIZUMAB
     Indication: Multiple sclerosis
     Dosage: SUBSEQUENT DOSE ON ON 12-APR-2025 , 600 MG AND 18-DEC-2025
     Route: 042
     Dates: start: 2024

REACTIONS (9)
  - Asthenia [Unknown]
  - Dizziness [Unknown]
  - Feeling hot [Unknown]
  - Ear pain [Unknown]
  - Nasopharyngitis [Recovering/Resolving]
  - Influenza [Unknown]
  - Headache [Unknown]
  - Immunodeficiency [Unknown]
  - Hot flush [Unknown]

NARRATIVE: CASE EVENT DATE: 20251001
